FAERS Safety Report 8113191-6 (Version None)
Quarter: 2012Q1

REPORT INFORMATION
  Report Type: 
  Country: None (occurrence: None)
  Receive Date: 20120203
  Receipt Date: 20120124
  Transmission Date: 20120608
  Serious: Yes (Other)
  Sender: FDA-Public Use
  Company Number: PHHY2012FR005147

PATIENT
  Age: 57 Year
  Sex: Male

DRUGS (2)
  1. ZOCOR [Concomitant]
     Indication: HYPERLIPIDAEMIA
  2. RASILEZ [Suspect]
     Indication: HYPERTENSION
     Route: 048

REACTIONS (2)
  - ATRIAL FIBRILLATION [None]
  - PALPITATIONS [None]
